FAERS Safety Report 6069642-4 (Version None)
Quarter: 2009Q1

REPORT INFORMATION
  Report Type: 
  Country: None (occurrence: None)
  Receive Date: 20090209
  Receipt Date: 20090129
  Transmission Date: 20090719
  Serious: Yes (Other)
  Sender: FDA-Public Use
  Company Number: US-JNJFOC-20090200641

PATIENT
  Sex: Female

DRUGS (2)
  1. EXTRA STRENGTH TYELNOL PM [Suspect]
     Indication: INSOMNIA
     Route: 048
  2. EXTRA STRENGTH TYELNOL PM [Suspect]
     Indication: PAIN
     Route: 048

REACTIONS (2)
  - DEPENDENCE [None]
  - DRUG DEPENDENCE [None]
